FAERS Safety Report 23406014 (Version 1)
Quarter: 2024Q1

REPORT INFORMATION
  Report Type: Spontaneous
  Country: US (occurrence: None)
  Receive Date: 20240114
  Receipt Date: 20240114
  Transmission Date: 20240410
  Serious: No
  Sender: FDA-Public Use
  Company Number: None

PATIENT

DRUGS (2)
  1. KEFLEX [Suspect]
     Active Substance: CEPHALEXIN
  2. LEVOFLOXACIN [Suspect]
     Active Substance: LEVOFLOXACIN

REACTIONS (5)
  - Transcription medication error [None]
  - Product selection error [None]
  - Product dispensing error [None]
  - Wrong product administered [None]
  - Device computer issue [None]
